FAERS Safety Report 12634289 (Version 1)
Quarter: 2016Q3

REPORT INFORMATION
  Report Type: Spontaneous
  Country: US (occurrence: None)
  Receive Date: 20160808
  Receipt Date: 20160808
  Transmission Date: 20161109
  Serious: Yes (Hospitalization)
  Sender: FDA-Public Use
  Company Number: None

PATIENT
  Age: 19 Year
  Sex: Male
  Weight: 109 kg

DRUGS (1)
  1. TOPIRAMATE. [Suspect]
     Active Substance: TOPIRAMATE
     Indication: MIGRAINE
     Route: 048
     Dates: start: 20151027, end: 20160803

REACTIONS (5)
  - Hyperammonaemia [None]
  - Mental status changes [None]
  - Rhabdomyolysis [None]
  - Respiratory failure [None]
  - Hyperthermia [None]

NARRATIVE: CASE EVENT DATE: 20160805
